FAERS Safety Report 9355613 (Version 1)
Quarter: 2013Q2

REPORT INFORMATION
  Report Type: Report from Study
  Country: DE (occurrence: DE)
  Receive Date: 20130619
  Receipt Date: 20130619
  Transmission Date: 20140414
  Serious: Yes (Hospitalization)
  Sender: FDA-Public Use
  Company Number: DE-ASTELLAS-2013US006338

PATIENT
  Age: 63 Year
  Sex: Male

DRUGS (4)
  1. ERLOTINIB TABLET [Suspect]
     Indication: PANCREATIC CARCINOMA
     Dosage: 100 MG, UID/QD
     Route: 048
     Dates: start: 20130417
  2. GEMCITABINE [Suspect]
     Indication: PANCREATIC CARCINOMA
     Dosage: 1000 MG, WEEKLY
     Route: 042
     Dates: start: 20130417
  3. GRANISETRON HYDROCHLORIDE [Concomitant]
     Indication: VOMITING
     Dosage: 2 MG, WEEKLY
     Route: 048
     Dates: start: 20130417
  4. PARACETAMOL [Concomitant]
     Indication: PAIN PROPHYLAXIS
     Dosage: 1 G, UID/QD
     Route: 048
     Dates: start: 20130417

REACTIONS (3)
  - Urinary retention [Unknown]
  - Malignant neoplasm progression [Unknown]
  - Abdominal pain [Recovered/Resolved with Sequelae]
